FAERS Safety Report 11500505 (Version 5)
Quarter: 2016Q1

REPORT INFORMATION
  Report Type: Spontaneous
  Country: US (occurrence: US)
  Receive Date: 20150914
  Receipt Date: 20160111
  Transmission Date: 20160525
  Serious: No
  Sender: FDA-Public Use
  Company Number: US-PFIZER INC-2015291824

PATIENT
  Age: 72 Year
  Sex: Male
  Weight: 79 kg

DRUGS (12)
  1. RAPAFLO [Concomitant]
     Active Substance: SILODOSIN
     Dosage: 8 MG, DAILY
     Route: 048
     Dates: start: 201505
  2. MYRBETRIQ [Concomitant]
     Active Substance: MIRABEGRON
  3. LOSARTAN. [Concomitant]
     Active Substance: LOSARTAN
     Dosage: 50 MG, 1X/DAY
     Dates: start: 20151030
  4. COZAAR [Concomitant]
     Active Substance: LOSARTAN POTASSIUM
     Dosage: UNK
  5. AMLODIPINE [Concomitant]
     Active Substance: AMLODIPINE BESYLATE
     Dosage: 10 MG, 1X/DAY
     Dates: start: 20151214
  6. AMLODIPINE [Concomitant]
     Active Substance: AMLODIPINE BESYLATE
     Indication: HYPERTENSION
     Dosage: 10 MG, DAILY
     Route: 048
  7. PROSCAR [Concomitant]
     Active Substance: FINASTERIDE
     Dosage: UNK
  8. LOSARTAN. [Concomitant]
     Active Substance: LOSARTAN
     Indication: HYPERTENSION
     Dosage: 50 MG, DAILY
     Route: 048
  9. RAPIDFLOX [Concomitant]
     Indication: PROSTATOMEGALY
     Dosage: 8 MG, DAILY
     Route: 048
  10. FINASTERIDE. [Concomitant]
     Active Substance: FINASTERIDE
     Indication: HYPERTONIC BLADDER
     Dosage: 5 MG, DAILY
     Route: 048
  11. SUTENT [Suspect]
     Active Substance: SUNITINIB MALATE
     Indication: RENAL CANCER METASTATIC
     Dosage: 50 MG, DAILY (BY MOUTH DAILY) 4 WEEKS ON 2 WEEKS OFF
     Route: 048
     Dates: start: 201506, end: 20151019
  12. PROTONIX [Concomitant]
     Active Substance: PANTOPRAZOLE SODIUM
     Dosage: UNK

REACTIONS (9)
  - Blood pressure increased [Unknown]
  - Dyspepsia [Unknown]
  - Hair disorder [Unknown]
  - Stomatitis [Unknown]
  - Dysgeusia [Unknown]
  - Glossodynia [Unknown]
  - Oral pain [Unknown]
  - Disease progression [Not Recovered/Not Resolved]
  - Renal cancer metastatic [Not Recovered/Not Resolved]

NARRATIVE: CASE EVENT DATE: 201506
